FAERS Safety Report 10082254 (Version 1)
Quarter: 2014Q2

REPORT INFORMATION
  Report Type: Spontaneous
  Country: US (occurrence: US)
  Receive Date: 20140416
  Receipt Date: 20140416
  Transmission Date: 20141212
  Serious: Yes (Other)
  Sender: FDA-Public Use
  Company Number: US-AMGEN INC.-USASP2014026086

PATIENT
  Sex: 0

DRUGS (3)
  1. NEULASTA [Suspect]
     Indication: PRODUCT USED FOR UNKNOWN INDICATION
     Dosage: UNK
     Route: 065
  2. HALAVEN [Suspect]
     Indication: PRODUCT USED FOR UNKNOWN INDICATION
     Dosage: UNK
     Route: 065
  3. XGEVA [Concomitant]
     Dosage: UNK

REACTIONS (7)
  - Knee arthroplasty [Unknown]
  - Feeling abnormal [Unknown]
  - Fatigue [Unknown]
  - Limb discomfort [Unknown]
  - Implant site pain [Unknown]
  - Pain in extremity [Unknown]
  - Muscle spasms [Unknown]
